FAERS Safety Report 6215703-6 (Version None)
Quarter: 2009Q2

REPORT INFORMATION
  Report Type: 
  Country: None (occurrence: None)
  Receive Date: 20090603
  Receipt Date: 20090603
  Transmission Date: 20091009
  Serious: Yes (Hospitalization, Other)
  Sender: FDA-Public Use
  Company Number: None

PATIENT
  Sex: Female
  Weight: 86.1834 kg

DRUGS (1)
  1. AMANTADINE HCL [Suspect]
     Indication: NERVOUS SYSTEM DISORDER
     Dosage: SEE IMAGE
     Dates: start: 20070227

REACTIONS (4)
  - BLOOD PRESSURE ORTHOSTATIC DECREASED [None]
  - CONTUSION [None]
  - FALL [None]
  - TOOTH FRACTURE [None]
